FAERS Safety Report 6425201-2 (Version None)
Quarter: 2009Q4

REPORT INFORMATION
  Report Type: 
  Country: None (occurrence: None)
  Receive Date: 20091029
  Receipt Date: 20081024
  Transmission Date: 20100525
  Serious: Yes (Hospitalization)
  Sender: FDA-Public Use
  Company Number: 177121USA

PATIENT
  Age: 78 Year
  Weight: 43.0917 kg

DRUGS (1)
  1. BECLOMETHASONE DIPROPIONATE [Suspect]
     Dosage: RESPIRATORY (INHALATION)
     Route: 055

REACTIONS (1)
  - OESOPHAGEAL CANDIDIASIS [None]
